FAERS Safety Report 17413567 (Version 1)
Quarter: 2020Q1

REPORT INFORMATION
  Report Type: Spontaneous
  Country: US (occurrence: US)
  Receive Date: 20200213
  Receipt Date: 20200213
  Transmission Date: 20200409
  Serious: Yes (Other)
  Sender: FDA-Public Use
  Company Number: None

PATIENT
  Age: 68 Year
  Sex: Male
  Weight: 69.75 kg

DRUGS (7)
  1. AMLODIPINE [Concomitant]
     Active Substance: AMLODIPINE BESYLATE
  2. ATROVASTATIN [Concomitant]
     Active Substance: ATORVASTATIN CALCIUM
  3. WELCHOL [Concomitant]
     Active Substance: COLESEVELAM HYDROCHLORIDE
  4. VITAMIN B12 [Concomitant]
     Active Substance: CYANOCOBALAMIN
  5. ARRID EXTRA DRY REGULAR [Suspect]
     Active Substance: ALUMINUM CHLOROHYDRATE
     Indication: HYPERHIDROSIS
     Dosage: ?          QUANTITY:1 SPRAY(S);?
     Route: 061
     Dates: start: 20200206, end: 20200208
  6. SILODOSIN. [Concomitant]
     Active Substance: SILODOSIN
  7. VITAMIN D3 [Concomitant]
     Active Substance: CHOLECALCIFEROL

REACTIONS (2)
  - Dermatitis contact [None]
  - Inflammation [None]

NARRATIVE: CASE EVENT DATE: 20200208
